FAERS Safety Report 7035305-1 (Version None)
Quarter: 2010Q4

REPORT INFORMATION
  Report Type: 
  Country: None (occurrence: None)
  Receive Date: 20101008
  Receipt Date: 20100930
  Transmission Date: 20110411
  Serious: Yes (Hospitalization)
  Sender: FDA-Public Use
  Company Number: B0677042A

PATIENT
  Sex: Female
  Weight: 107 kg

DRUGS (6)
  1. AUGMENTIN '125' [Suspect]
     Indication: ANTIBIOTIC PROPHYLAXIS
     Dosage: 7G PER DAY
     Route: 042
     Dates: start: 20100903, end: 20100903
  2. SERETIDE [Concomitant]
     Route: 065
  3. VENTOLIN [Concomitant]
     Route: 065
  4. ZYRTEC [Concomitant]
     Route: 065
  5. RILMENIDINE [Concomitant]
     Route: 065
  6. LISINOPRIL [Concomitant]
     Route: 065

REACTIONS (4)
  - CRYSTAL URINE [None]
  - HAEMATURIA [None]
  - RENAL FAILURE ACUTE [None]
  - RESPIRATORY DISTRESS [None]
